FAERS Safety Report 17810480 (Version 1)
Quarter: 2020Q2

REPORT INFORMATION
  Report Type: Spontaneous
  Country: FR (occurrence: FR)
  Receive Date: 20200521
  Receipt Date: 20200521
  Transmission Date: 20200714
  Serious: Yes (Other)
  Sender: FDA-Public Use
  Company Number: FR-TEVA-2020-FR-1237187

PATIENT
  Age: 78 Year
  Sex: Female
  Weight: 40 kg

DRUGS (9)
  1. BARACLUDE [Suspect]
     Active Substance: ENTECAVIR
     Indication: HEPATITIS B
     Route: 048
     Dates: start: 201809
  2. VIREAD [Suspect]
     Active Substance: TENOFOVIR DISOPROXIL FUMARATE
     Indication: HEPATITIS B
     Route: 048
     Dates: start: 201701
  3. IBUFETUM 5 %, GEL [Suspect]
     Active Substance: IBUPROFEN
     Indication: INFLAMMATORY PAIN
     Route: 003
     Dates: start: 201808, end: 201911
  4. DOLIPRANE [Concomitant]
     Active Substance: ACETAMINOPHEN
  5. AZARGA 10 MG/ML + 5 MG/ML, COLLYRE EN SUSPENSION [Concomitant]
  6. VOGALENE [Concomitant]
     Active Substance: METOPIMAZINE
  7. INEXIUM [Concomitant]
     Active Substance: ESOMEPRAZOLE
  8. DICLOFENAC [Suspect]
     Active Substance: DICLOFENAC
     Indication: INFLAMMATORY PAIN
     Route: 065
     Dates: start: 201608, end: 201909
  9. NAPROXENE [Suspect]
     Active Substance: NAPROXEN
     Indication: INFLAMMATORY PAIN
     Route: 048
     Dates: start: 201804, end: 201903

REACTIONS (1)
  - Neutropenia [Not Recovered/Not Resolved]
